FAERS Safety Report 6048768-5 (Version None)
Quarter: 2009Q1

REPORT INFORMATION
  Report Type: 
  Country: None (occurrence: None)
  Receive Date: 20090123
  Receipt Date: 20090115
  Transmission Date: 20090719
  Serious: Yes (Hospitalization)
  Sender: FDA-Public Use
  Company Number: FR-NOVOPROD-283295

PATIENT
  Age: 29 Year
  Sex: Male

DRUGS (1)
  1. GLUCAGEN [Suspect]
     Indication: TYPE 2 DIABETES MELLITUS
     Dosage: 1 UNK, UNK
     Dates: start: 20080101, end: 20080101

REACTIONS (2)
  - HYPERTENSION [None]
  - SYNCOPE [None]
